FAERS Safety Report 5087760-4 (Version None)
Quarter: 2006Q3

REPORT INFORMATION
  Report Type: 
  Country: None (occurrence: None)
  Receive Date: 20060824
  Receipt Date: 20060303
  Transmission Date: 20061208
  Serious: Yes (Hospitalization)
  Sender: FDA-Public Use
  Company Number: US-BRISTOL-MYERS SQUIBB COMPANY-13303342

PATIENT
  Age: 72 Year
  Sex: Female

DRUGS (12)
  1. CARBOPLATIN [Suspect]
     Indication: OVARIAN CANCER
     Route: 042
     Dates: start: 20050607, end: 20050607
  2. TLK286 [Suspect]
     Indication: OVARIAN CANCER
     Route: 042
     Dates: start: 20050607, end: 20050607
  3. PRAVASTATIN SODIUM [Concomitant]
     Indication: HYPERCHOLESTEROLAEMIA
     Route: 048
     Dates: start: 19950101
  4. LEVOTHYROXINE SODIUM [Concomitant]
     Indication: HYPOTHYROIDISM
     Route: 048
     Dates: start: 19820101
  5. CENTRUM SILVER [Concomitant]
     Indication: VITAMIN SUPPLEMENTATION
     Route: 048
     Dates: start: 19950101
  6. IRON [Concomitant]
     Indication: NUTRITIONAL SUPPORT
     Route: 048
     Dates: start: 20050519
  7. LORAZEPAM [Concomitant]
     Indication: NAUSEA
     Route: 048
     Dates: start: 20050512
  8. IMODIUM [Concomitant]
     Indication: DIARRHOEA
     Route: 048
     Dates: start: 20050511
  9. LIDOCAINE [Concomitant]
     Indication: PARACENTESIS
     Route: 058
     Dates: start: 20050613, end: 20050616
  10. BENADRYL CREAM [Concomitant]
     Indication: PRURITUS
     Route: 061
     Dates: start: 20050616, end: 20050710
  11. CALADRYL [Concomitant]
     Indication: PRURITUS
     Route: 061
     Dates: start: 20050617
  12. NEULASTA [Concomitant]
     Indication: NEUTROPENIA
     Route: 058
     Dates: start: 20050622, end: 20050622

REACTIONS (14)
  - ASCITES [None]
  - BLOOD ALBUMIN DECREASED [None]
  - BLOOD CALCIUM DECREASED [None]
  - BLOOD CHLORIDE DECREASED [None]
  - BLOOD SODIUM DECREASED [None]
  - CELLULITIS [None]
  - DERMATITIS ALLERGIC [None]
  - DERMATITIS CONTACT [None]
  - DRUG HYPERSENSITIVITY [None]
  - LYMPHOEDEMA [None]
  - OEDEMA PERIPHERAL [None]
  - PANCYTOPENIA [None]
  - PLEURAL EFFUSION [None]
  - PROTEIN TOTAL DECREASED [None]
